FAERS Safety Report 9326192 (Version 1)
Quarter: 2013Q2

REPORT INFORMATION
  Report Type: Spontaneous
  Country: JP (occurrence: JP)
  Receive Date: 20130604
  Receipt Date: 20130604
  Transmission Date: 20140414
  Serious: Yes (Other)
  Sender: FDA-Public Use
  Company Number: JP-PFIZER INC-2013162467

PATIENT
  Age: 79 Year
  Sex: Female

DRUGS (1)
  1. DETRUSITOL [Suspect]

REACTIONS (3)
  - Nephritis [Unknown]
  - Dysuria [Unknown]
  - Incontinence [Unknown]
